FAERS Safety Report 4593846-0 (Version None)
Quarter: 2005Q1

REPORT INFORMATION
  Report Type: 
  Country: None (occurrence: None)
  Receive Date: 20050301
  Receipt Date: 20050216
  Transmission Date: 20050727
  Serious: Yes (Other)
  Sender: FDA-Public Use
  Company Number: 200511352US

PATIENT
  Sex: Female

DRUGS (2)
  1. KETEK [Suspect]
     Indication: SINUSITIS
     Route: 048
     Dates: start: 20050208, end: 20050209
  2. AVANDAMET [Concomitant]
     Dosage: DOSE: UNKNOWN

REACTIONS (2)
  - BLISTER [None]
  - EYE DISORDER [None]
